FAERS Safety Report 9914871 (Version 2)
Quarter: 2014Q1

REPORT INFORMATION
  Report Type: Report from Study
  Country: AU (occurrence: AU)
  Receive Date: 20140220
  Receipt Date: 20140304
  Transmission Date: 20141002
  Serious: Yes (Death, Hospitalization)
  Sender: FDA-Public Use
  Company Number: PHHY2014AU020922

PATIENT
  Age: 93 Year
  Sex: Female

DRUGS (9)
  1. ACLASTA [Suspect]
     Dosage: 5 MG, UNK
     Route: 042
     Dates: start: 20100708
  2. ACLASTA [Suspect]
     Dosage: 5 MG, UNK
     Route: 042
     Dates: start: 20110912
  3. ACLASTA [Suspect]
     Dosage: 5 MG, UNK
     Route: 042
     Dates: start: 20121012
  4. ATACAND PLUS [Concomitant]
     Indication: HYPERTENSION
     Dosage: UNK UKN, UNK NOCTE
     Route: 048
  5. AZOPT [Concomitant]
     Indication: GLAUCOMA
     Dosage: UNK UKN, BID
  6. TIMOLOL [Concomitant]
     Indication: GLAUCOMA
     Dosage: UNK UKN, UNK NOCTE
  7. XALACOM [Concomitant]
     Indication: GLAUCOMA
     Dosage: UNK UKN, UNK NOCTE
  8. ANTIARRHYTHMIC AGENTS [Concomitant]
  9. TIMOPTOL [Concomitant]

REACTIONS (3)
  - Death [Fatal]
  - Acute myocardial infarction [Unknown]
  - General physical health deterioration [Unknown]
